FAERS Safety Report 4408419-X (Version None)
Quarter: 2004Q3

REPORT INFORMATION
  Report Type: 
  Country: None (occurrence: None)
  Receive Date: 20040722
  Receipt Date: 20040707
  Transmission Date: 20050211
  Serious: Yes (Other)
  Sender: FDA-Public Use
  Company Number: 2004-BP-05349BP (0)

PATIENT
  Age: 22 Year
  Sex: Female

DRUGS (5)
  1. VIRAMUNE [Suspect]
     Indication: HIV INFECTION
     Dosage: 200 MG (NR, 2 IN 1 D), PO
     Route: 048
     Dates: start: 20040129
  2. EFAVIRENZ (EFAVIRENZ) [Suspect]
     Indication: HIV INFECTION
     Dosage: 600 MG, PO
     Route: 048
     Dates: start: 20030508, end: 20031204
  3. TENOFOVIR [Suspect]
     Indication: HIV INFECTION
     Dosage: 300 MG 1 IN 1 DAY PO
     Route: 048
     Dates: start: 20030508, end: 20031204
  4. DIDANOSINE [Suspect]
     Indication: HIV INFECTION
     Dosage: 250 MG 1 IN 1 DAY  PO
     Route: 048
     Dates: start: 20030508, end: 20031204
  5. COMBIVIR [Suspect]
     Indication: HIV INFECTION
     Dosage: 300/600 Q DAY  PO
     Route: 048
     Dates: start: 20040129

REACTIONS (3)
  - DRUG EXPOSURE DURING PREGNANCY [None]
  - PREMATURE SEPARATION OF PLACENTA [None]
  - STILLBIRTH [None]
